FAERS Safety Report 5669738-2 (Version None)
Quarter: 2008Q1

REPORT INFORMATION
  Report Type: 
  Country: None (occurrence: None)
  Receive Date: 20080317
  Receipt Date: 20080313
  Transmission Date: 20080703
  Serious: Yes (Hospitalization)
  Sender: FDA-Public Use
  Company Number: IN-BRISTOL-MYERS SQUIBB COMPANY-14113575

PATIENT
  Age: 29 Year
  Sex: Female

DRUGS (1)
  1. ABATACEPT [Suspect]
     Indication: COLITIS ULCERATIVE
     Route: 042

REACTIONS (3)
  - ABDOMINAL PAIN [None]
  - FREQUENT BOWEL MOVEMENTS [None]
  - RECTAL HAEMORRHAGE [None]
